FAERS Safety Report 8477343-8 (Version None)
Quarter: 2012Q2

REPORT INFORMATION
  Report Type: 
  Country: None (occurrence: None)
  Receive Date: 20120620
  Receipt Date: 20120607
  Transmission Date: 20120825
  Serious: Yes (Other)
  Sender: FDA-Public Use
  Company Number: US-1192662

PATIENT
  Age: 80 Year
  Sex: Male
  Weight: 171.6 kg

DRUGS (6)
  1. VIGAMOX [Suspect]
     Indication: INTRAOCULAR LENS IMPLANT
     Dosage: (OPTHALMIC)
     Route: 047
     Dates: start: 20120515, end: 20120515
  2. BSS [Suspect]
     Dosage: (INTRAOCULAR)
     Route: 031
     Dates: start: 20120515, end: 20120515
  3. BSS [Suspect]
     Indication: INTRAOCULAR LENS IMPLANT
     Dosage: (INTRAOCULAR)
     Route: 031
     Dates: start: 20120515, end: 20120515
  4. EPINEPHRINE [Concomitant]
  5. BETADINE [Suspect]
     Indication: INTRAOCULAR LENS IMPLANT
     Dosage: (OPHTHALMIC)
     Route: 047
     Dates: start: 20120515, end: 20120515
  6. NEVANAC [Suspect]
     Indication: INTRAOCULAR LENS IMPLANT
     Dosage: (OPHTHALMIC)
     Route: 047
     Dates: start: 20120515, end: 20120515

REACTIONS (2)
  - TOXIC ANTERIOR SEGMENT SYNDROME [None]
  - MEDICATION ERROR [None]
